FAERS Safety Report 20230766 (Version 2)
Quarter: 2022Q1

REPORT INFORMATION
  Report Type: Report from Study
  Country: CA (occurrence: CA)
  Receive Date: 20211227
  Receipt Date: 20220114
  Transmission Date: 20220423
  Serious: Yes (Death, Hospitalization, Other)
  Sender: FDA-Public Use
  Company Number: CA-ABBVIE-21K-028-4212852-00

PATIENT
  Sex: Male

DRUGS (1)
  1. RINVOQ [Suspect]
     Active Substance: UPADACITINIB
     Indication: Rheumatoid arthritis
     Route: 048
     Dates: start: 20200824

REACTIONS (5)
  - Death [Fatal]
  - Chronic respiratory failure [Unknown]
  - Dyspnoea [Unknown]
  - Palliative care [Unknown]
  - Infection [Unknown]

NARRATIVE: CASE EVENT DATE: 20210101
